FAERS Safety Report 14847187 (Version 1)
Quarter: 2018Q2

REPORT INFORMATION
  Report Type: Spontaneous
  Country: FR (occurrence: FR)
  Receive Date: 20180504
  Receipt Date: 20180504
  Transmission Date: 20180711
  Serious: Yes (Other)
  Sender: FDA-Public Use
  Company Number: FR-TEVA-2018-FR-889355

PATIENT
  Age: 67 Year
  Sex: Male

DRUGS (1)
  1. OFLOXACINE [Suspect]
     Active Substance: OFLOXACIN
     Indication: ARTHRITIS INFECTIVE
     Dosage: 600 MILLIGRAM DAILY;
     Route: 048

REACTIONS (1)
  - Tendon pain [Not Recovered/Not Resolved]
